FAERS Safety Report 9801831 (Version 1)
Quarter: 2014Q1

REPORT INFORMATION
  Report Type: Spontaneous
  Country: CA (occurrence: CA)
  Receive Date: 20140107
  Receipt Date: 20140107
  Transmission Date: 20141002
  Serious: Yes (Hospitalization)
  Sender: FDA-Public Use
  Company Number: CA-009507513-1401CAN001815

PATIENT
  Age: 46 Year
  Sex: Female

DRUGS (1)
  1. EMEND [Suspect]
     Dosage: DAILY, TRI PACK
     Route: 048

REACTIONS (1)
  - Lung infection [Recovered/Resolved]
